FAERS Safety Report 7092604-5 (Version None)
Quarter: 2010Q4

REPORT INFORMATION
  Report Type: 
  Country: None (occurrence: None)
  Receive Date: 20101108
  Receipt Date: 20101108
  Transmission Date: 20110411
  Serious: Yes (Life-Threatening)
  Sender: FDA-Public Use
  Company Number: None

PATIENT
  Age: 59 Year
  Sex: Male
  Weight: 61.3 kg

DRUGS (2)
  1. SODIUM NITROPRUSSIDE [Suspect]
     Indication: HYPERTENSION
     Dosage: 100MG IN D5W 250ML CONTINUOUS INFUSION IV DRIP
     Route: 041
     Dates: start: 20101021, end: 20101023
  2. SODIUM NITROPRUSSIDE -NITROPRESS- [Concomitant]

REACTIONS (4)
  - AGITATION [None]
  - CONFUSIONAL STATE [None]
  - DELIRIUM [None]
  - MENTAL STATUS CHANGES [None]
